FAERS Safety Report 5227041-9 (Version None)
Quarter: 2007Q1

REPORT INFORMATION
  Report Type: 
  Country: None (occurrence: None)
  Receive Date: 20070201
  Receipt Date: 20070201
  Transmission Date: 20070707
  Serious: No
  Sender: FDA-Public Use
  Company Number: None

PATIENT
  Sex: Female
  Weight: 61.3 kg

DRUGS (9)
  1. TEMOZOLOMIDE [Suspect]
     Dosage: 1875 MG
  2. AMBIEN [Concomitant]
  3. BACTRIM [Concomitant]
  4. DILANTIN [Concomitant]
  5. KYTRIL [Concomitant]
  6. PRANDIN [Concomitant]
  7. PROTONIX [Concomitant]
  8. AVANDIA [Concomitant]
  9. BISOPROLOL FUMARATE AND HYDROCHLOROTHIAZIDE [Concomitant]

REACTIONS (1)
  - LYMPHOPENIA [None]
